FAERS Safety Report 6297014-6 (Version None)
Quarter: 2009Q3

REPORT INFORMATION
  Report Type: 
  Country: None (occurrence: None)
  Receive Date: 20090804
  Receipt Date: 20090723
  Transmission Date: 20100115
  Serious: Yes (Hospitalization, Disabling, Other)
  Sender: FDA-Public Use
  Company Number: AU-WYE-G03995809

PATIENT
  Sex: Female

DRUGS (8)
  1. EFFEXOR XR [Suspect]
     Indication: DEPRESSION
     Dosage: 75MG DAILY
     Dates: start: 20080801
  2. EFFEXOR XR [Suspect]
     Dosage: DOSE INCRREASED VERY QUICKLY AT UNKNOWN INCREMENTS
  3. EFFEXOR XR [Suspect]
     Dosage: 525MG DAILY
     Dates: end: 20090610
  4. EFFEXOR XR [Suspect]
     Dosage: 450MG DAILY
     Dates: start: 20090611
  5. EFFEXOR XR [Suspect]
     Dosage: TAPERING OFF/DECREASED DOSE EVERY 2 DAYS
  6. EFFEXOR XR [Suspect]
     Dosage: 75MG DAILY
     Dates: start: 20090625, end: 20090625
  7. TEMAZEPAM [Concomitant]
     Dosage: UNKNOWN
  8. VALIUM [Concomitant]
     Dosage: UNKNOWN

REACTIONS (27)
  - ANGER [None]
  - BLOOD CHOLESTEROL INCREASED [None]
  - BLOOD GLUCOSE ABNORMAL [None]
  - BLOOD TRIGLYCERIDES INCREASED [None]
  - BURNING SENSATION [None]
  - CHEST PAIN [None]
  - DIZZINESS [None]
  - DRUG INEFFECTIVE [None]
  - DRUG WITHDRAWAL SYNDROME [None]
  - DYSGEUSIA [None]
  - EYE PAIN [None]
  - FOLATE DEFICIENCY [None]
  - FOREIGN BODY SENSATION IN EYES [None]
  - HEAD DISCOMFORT [None]
  - HYPERACUSIS [None]
  - HYPERHIDROSIS [None]
  - HYPERTENSION [None]
  - MEMORY IMPAIRMENT [None]
  - NAUSEA [None]
  - NIGHT SWEATS [None]
  - NIGHTMARE [None]
  - OCULAR HYPERAEMIA [None]
  - PAIN IN EXTREMITY [None]
  - PARAESTHESIA [None]
  - SEDATION [None]
  - SUICIDAL IDEATION [None]
  - UNEVALUABLE EVENT [None]
